FAERS Safety Report 8139529-1 (Version None)
Quarter: 2012Q1

REPORT INFORMATION
  Report Type: 
  Country: None (occurrence: None)
  Receive Date: 20120215
  Receipt Date: 20120206
  Transmission Date: 20120608
  Serious: Yes (Other)
  Sender: FDA-Public Use
  Company Number: IT-ASTRAZENECA-2012SE07817

PATIENT
  Sex: Male

DRUGS (2)
  1. ATENOLOL AND CHLORTHALIDONE [Suspect]
     Route: 048
  2. ATENOLOL [Suspect]
     Route: 065

REACTIONS (1)
  - HYPERTENSION [None]
